FAERS Safety Report 10075411 (Version 1)
Quarter: 2014Q1

REPORT INFORMATION
  Report Type: Spontaneous
  Country: US (occurrence: None)
  Receive Date: 20140318
  Receipt Date: 20140318
  Transmission Date: 20141002
  Serious: Yes (Other)
  Sender: FDA-Public Use
  Company Number: 2014-00016

PATIENT
  Age: 34 Year
  Sex: Female
  Weight: 72.58 kg

DRUGS (2)
  1. ZICAM COLD REMEDY RAPIDMELTS WITH ECHINA CEA [Suspect]
     Indication: NASOPHARYNGITIS
     Dosage: 1 RAPIDMELT ORALLY EVERY 4 HOURS
     Dates: start: 20140122, end: 20140124
  2. ZICAM COLD REMEDY RAPIDMELTS WITH ECHINA CEA [Suspect]
     Indication: INFLUENZA
     Dosage: 1 RAPIDMELT ORALLY EVERY 4 HOURS
     Dates: start: 20140122, end: 20140124

REACTIONS (3)
  - Headache [None]
  - Ageusia [None]
  - Anosmia [None]
